FAERS Safety Report 7875764-5 (Version None)
Quarter: 2011Q4

REPORT INFORMATION
  Report Type: 
  Country: None (occurrence: None)
  Receive Date: 20111031
  Receipt Date: 20111024
  Transmission Date: 20120403
  Serious: Yes (Hospitalization)
  Sender: FDA-Public Use
  Company Number: NO-BAYER-2011-103044

PATIENT
  Age: 35 Year
  Sex: Female
  Weight: 91 kg

DRUGS (1)
  1. MIRENA [Suspect]
     Indication: CONTRACEPTION
     Dosage: UNK
     Route: 015
     Dates: start: 20090903, end: 20110303

REACTIONS (4)
  - ABNORMAL BEHAVIOUR [None]
  - SLEEP DISORDER [None]
  - DEPRESSION [None]
  - PSYCHOTIC DISORDER [None]
